FAERS Safety Report 8999930 (Version 4)
Quarter: 2013Q1

REPORT INFORMATION
  Report Type: Spontaneous
  Country: US (occurrence: US)
  Receive Date: 20130102
  Receipt Date: 20130214
  Transmission Date: 20140127
  Serious: Yes (Other)
  Sender: FDA-Public Use
  Company Number: US-PFIZER INC-2012331229

PATIENT
  Age: 65 Year
  Sex: Female
  Weight: 71 kg

DRUGS (7)
  1. XALATAN [Suspect]
     Indication: GLAUCOMA
     Dosage: 1 GTT, DAILY AT NIGHT
     Route: 047
     Dates: start: 200411
  2. XALATAN [Suspect]
     Indication: INTRAOCULAR PRESSURE INCREASED
     Dosage: UNK
  3. XALATAN [Suspect]
     Dosage: UNK
  4. PREDNISONE [Suspect]
     Indication: EYE INFLAMMATION
     Dosage: 1 GTT, DAILY
     Route: 047
     Dates: start: 20121119
  5. PREDNISONE [Suspect]
     Indication: EYE PAIN
  6. PREDNISONE [Suspect]
     Indication: PHOTOPHOBIA
  7. IOPIDINE [Concomitant]
     Indication: INTRAOCULAR PRESSURE INCREASED
     Dosage: UNK, 2X/DAY
     Route: 047
     Dates: start: 20121125

REACTIONS (5)
  - Intraocular pressure increased [Unknown]
  - Eye pain [Recovered/Resolved]
  - Photophobia [Recovered/Resolved]
  - Eye inflammation [Unknown]
  - Weight increased [Unknown]
